FAERS Safety Report 10516411 (Version 2)
Quarter: 2014Q4

REPORT INFORMATION
  Report Type: Spontaneous
  Country: BR (occurrence: BR)
  Receive Date: 20141014
  Receipt Date: 20141110
  Transmission Date: 20150528
  Serious: Yes (Other)
  Sender: FDA-Public Use
  Company Number: BR-SA-2014SA138168

PATIENT
  Age: 14 Year
  Sex: Male
  Weight: 66.5 kg

DRUGS (4)
  1. CLIKSTAR [Concomitant]
     Active Substance: CLIKSTAR
     Indication: DIABETES MELLITUS
  2. CLIKSTAR [Concomitant]
     Active Substance: CLIKSTAR
     Indication: DIABETES MELLITUS
  3. APIDRA [Suspect]
     Active Substance: INSULIN GLULISINE
     Indication: DIABETES MELLITUS
     Dosage: DOSE-2IU IF GLYCEMIC LEVELS FLOAT
     Route: 065
     Dates: start: 201307
  4. LANTUS [Suspect]
     Active Substance: INSULIN GLARGINE
     Indication: DIABETES MELLITUS
     Dosage: FREQUENCY-IN THE MORNING
     Route: 065
     Dates: start: 201307

REACTIONS (2)
  - Osteochondroma [Recovered/Resolved]
  - Nodule [Recovered/Resolved]

NARRATIVE: CASE EVENT DATE: 201309
